FAERS Safety Report 4920483-8 (Version None)
Quarter: 2006Q1

REPORT INFORMATION
  Report Type: 
  Country: None (occurrence: None)
  Receive Date: 20060223
  Receipt Date: 20060213
  Transmission Date: 20060701
  Serious: Yes (Hospitalization, Disabling)
  Sender: FDA-Public Use
  Company Number: US-MERCK-0602USA04213

PATIENT
  Age: 33 Year
  Sex: Male
  Weight: 107 kg

DRUGS (5)
  1. VIOXX [Suspect]
     Indication: ARTHRITIS
     Route: 048
     Dates: start: 19990201, end: 20001101
  2. ACCUPRIL [Concomitant]
     Route: 065
  3. LIPITOR [Concomitant]
     Route: 065
  4. GLUCOTROL [Concomitant]
     Route: 065
  5. GLUCOPHAGE [Concomitant]
     Route: 065

REACTIONS (6)
  - ARTHRALGIA [None]
  - CHEST PAIN [None]
  - DYSPNOEA [None]
  - MYOCARDIAL INFARCTION [None]
  - POLYDIPSIA [None]
  - POLYURIA [None]
